FAERS Safety Report 10286233 (Version 2)
Quarter: 2015Q1

REPORT INFORMATION
  Report Type: Spontaneous
  Country: US (occurrence: None)
  Receive Date: 20140703
  Receipt Date: 20150209
  Transmission Date: 20150720
  Serious: Yes (Death)
  Sender: FDA-Public Use
  Company Number: UNT-2014-001989

PATIENT
  Age: 67 Year
  Sex: Male
  Weight: 79.8 kg

DRUGS (2)
  1. REMODULIN [Suspect]
     Active Substance: TREPROSTINIL
     Indication: PULMONARY ARTERIAL HYPERTENSION
     Dosage: 0.040 UG/KG, CONTINUING, IV DRIP?
     Route: 041
     Dates: start: 20131217
  2. PRADAXA [Concomitant]
     Active Substance: DABIGATRAN ETEXILATE MESYLATE

REACTIONS (3)
  - Death [None]
  - Endocarditis bacterial [None]
  - Device related sepsis [None]

NARRATIVE: CASE EVENT DATE: 2014
